FAERS Safety Report 13499411 (Version 1)
Quarter: 2017Q2

REPORT INFORMATION
  Report Type: Spontaneous
  Country: GR (occurrence: GR)
  Receive Date: 20170501
  Receipt Date: 20170501
  Transmission Date: 20170830
  Serious: Yes (Hospitalization, Other)
  Sender: FDA-Public Use
  Company Number: GR-MYLANLABS-2017M1025859

PATIENT

DRUGS (8)
  1. NITRONG [Concomitant]
     Active Substance: NITROGLYCERIN
  2. LASIX [Concomitant]
     Active Substance: FUROSEMIDE
  3. SOLURIC [Concomitant]
     Active Substance: ALLOPURINOL
  4. PENRAZOL                           /00661201/ [Concomitant]
  5. LEPUR [Suspect]
     Active Substance: SIMVASTATIN
     Indication: DYSLIPIDAEMIA
     Route: 048
  6. APROVEL [Concomitant]
     Active Substance: IRBESARTAN
  7. KLARICID [Suspect]
     Active Substance: CLARITHROMYCIN
     Indication: RESPIRATORY TRACT INFECTION
     Route: 048
     Dates: start: 20170322, end: 20170331
  8. AMLODIPINE [Concomitant]
     Active Substance: AMLODIPINE BESYLATE
     Indication: HYPERTENSION
     Route: 048

REACTIONS (2)
  - Rhabdomyolysis [Not Recovered/Not Resolved]
  - Hypokalaemia [Not Recovered/Not Resolved]

NARRATIVE: CASE EVENT DATE: 20170331
